FAERS Safety Report 5837180-7 (Version None)
Quarter: 2008Q3

REPORT INFORMATION
  Report Type: 
  Country: None (occurrence: None)
  Receive Date: 20080731
  Receipt Date: 20080606
  Transmission Date: 20090109
  Serious: No
  Sender: FDA-Public Use
  Company Number: US200806002450

PATIENT
  Sex: Male

DRUGS (3)
  1. BYETTA [Suspect]
     Dosage: 5 UG
  2. FORTAMET (METFORMIN HYDROCHLORIDE) [Concomitant]
  3. EXENATIDE 5 MCG PEN, DISPOSABLE DEVICE (EXENATIDE PEN (5 MCG)) PEN, DI [Concomitant]

REACTIONS (1)
  - BLOOD AMYLASE INCREASED [None]
